FAERS Safety Report 4506377-0 (Version None)
Quarter: 2004Q4

REPORT INFORMATION
  Report Type: 
  Country: None (occurrence: None)
  Receive Date: 20041025
  Receipt Date: 20031209
  Transmission Date: 20050328
  Serious: Yes (Other)
  Sender: FDA-Public Use
  Company Number: US-JNJFOC-20030903187

PATIENT
  Age: 48 Year
  Sex: Female

DRUGS (10)
  1. REMICADE [Suspect]
     Dosage: 300 MG, INTRAVENOUS
     Route: 042
     Dates: start: 20030328
  2. REMICADE [Suspect]
     Dosage: 300 MG, INTRAVENOUS
     Route: 042
     Dates: start: 20030410
  3. REMICADE [Suspect]
     Dosage: 300 MG, INTRAVENOUS
     Route: 042
     Dates: start: 20030508
  4. REMICADE [Suspect]
     Dosage: 300 MG, INTRAVENOUS
     Route: 042
     Dates: start: 20030630
  5. REMICADE [Suspect]
     Dosage: 300 MG, INTRAVENOUS
     Route: 042
     Dates: start: 20030915
  6. ARAVA [Concomitant]
  7. RELAFEN [Concomitant]
  8. SYNTHROID [Concomitant]
  9. PREDNISONE [Concomitant]
  10. XANAX [Concomitant]

REACTIONS (1)
  - ANAPHYLACTOID REACTION [None]
